FAERS Safety Report 10039402 (Version 2)
Quarter: 2014Q2

REPORT INFORMATION
  Report Type: Spontaneous
  Country: US (occurrence: None)
  Receive Date: 20140318
  Receipt Date: 20140617
  Transmission Date: 20141212
  Serious: No
  Sender: FDA-Public Use
  Company Number: 2014CT000018

PATIENT
  Age: 33 Year
  Sex: Female

DRUGS (7)
  1. KORLYM [Suspect]
     Indication: CUSHING^S SYNDROME
     Dates: start: 201401, end: 201404
  2. MULTIVITAMINS [Concomitant]
  3. LISINOPRIL [Concomitant]
  4. PRISTIQ [Concomitant]
  5. AMBIEN [Concomitant]
  6. TIROSINT [Concomitant]
  7. SPIRONOLACTONE [Concomitant]

REACTIONS (10)
  - Asthenia [None]
  - Diarrhoea [None]
  - Back pain [None]
  - Malaise [None]
  - Vaginal discharge [None]
  - Activities of daily living impaired [None]
  - Dry mouth [None]
  - Pelvic discomfort [None]
  - Hepatic enzyme increased [None]
  - Pelvic pain [None]
